FAERS Safety Report 8805099 (Version 1)
Quarter: 2012Q4

REPORT INFORMATION
  Report Type: Spontaneous
  Country: US (occurrence: None)
  Receive Date: 20120919
  Receipt Date: 20120919
  Transmission Date: 20130627
  Serious: No
  Sender: FDA-Public Use
  Company Number: None

PATIENT

DRUGS (2)
  1. FENTANYL [Suspect]
     Dosage: Patch transdermal 25 mcg
     Route: 062
  2. FENTANYL [Suspect]
     Dosage: Patch transdermal 50 mcg/hr

REACTIONS (6)
  - Incorrect dose administered [None]
  - Dizziness [None]
  - Hyperhidrosis [None]
  - Nausea [None]
  - Chest discomfort [None]
  - Drug prescribing error [None]
